FAERS Safety Report 19664839 (Version 2)
Quarter: 2021Q3

REPORT INFORMATION
  Report Type: Report from Study
  Country: US (occurrence: US)
  Receive Date: 20210805
  Receipt Date: 20210818
  Transmission Date: 20211014
  Serious: No
  Sender: FDA-Public Use
  Company Number: NVSC2021US159353

PATIENT
  Age: 31 Year
  Sex: Female

DRUGS (3)
  1. COSENTYX [Suspect]
     Active Substance: SECUKINUMAB
     Indication: INJECTION SITE WARMTH
     Dosage: 150 MG, QW
     Route: 058
     Dates: start: 202107
  2. COSENTYX [Suspect]
     Active Substance: SECUKINUMAB
     Indication: ANKYLOSING SPONDYLITIS
     Dosage: 150 MG, QW
     Route: 058
     Dates: start: 20210709
  3. COSENTYX [Suspect]
     Active Substance: SECUKINUMAB
     Indication: PSORIASIS
     Dosage: 300 MG, QW
     Route: 058
     Dates: start: 202106

REACTIONS (4)
  - Injection site warmth [Unknown]
  - Injection site pain [Unknown]
  - Accidental exposure to product [Unknown]
  - Pain [Unknown]

NARRATIVE: CASE EVENT DATE: 202107
